FAERS Safety Report 16063693 (Version 1)
Quarter: 2019Q1

REPORT INFORMATION
  Report Type: Spontaneous
  Country: GB (occurrence: GB)
  Receive Date: 20190312
  Receipt Date: 20190312
  Transmission Date: 20190418
  Serious: Yes (Other)
  Sender: FDA-Public Use
  Company Number: GB-PERRIGO-19GB002998

PATIENT
  Age: 33 Year
  Sex: Female
  Weight: 53.5 kg

DRUGS (8)
  1. LEVOTHYROXINE SODIUM. [Concomitant]
     Active Substance: LEVOTHYROXINE SODIUM
     Indication: PRODUCT USED FOR UNKNOWN INDICATION
  2. NUROFEN EXPRESS /00109201/ [Suspect]
     Active Substance: IBUPROFEN
     Indication: PRODUCT USED FOR UNKNOWN INDICATION
     Dosage: 2 DF, SINGLE
     Route: 048
  3. COVONIA                            /00688801/ [Concomitant]
     Indication: PRODUCT USED FOR UNKNOWN INDICATION
  4. NIGHT NURSE COLD REMEDY [Suspect]
     Active Substance: ACETAMINOPHEN\DEXTROMETHORPHAN HYDROBROMIDE\PROMETHAZINE HYDROCHLORIDE
     Indication: COUGH
     Dosage: 20 MG, QD
     Route: 048
     Dates: start: 20190218, end: 20190219
  5. PARACETAMOL [Suspect]
     Active Substance: ACETAMINOPHEN
     Indication: PRODUCT USED FOR UNKNOWN INDICATION
     Dosage: 1 DF, SINGLE
     Route: 048
  6. PHOLCODINE LINCTUS [Suspect]
     Active Substance: PHOLCODINE
     Indication: PRODUCT USED FOR UNKNOWN INDICATION
     Dosage: 2 DF, UNK
     Route: 065
  7. STREPSILS C [Concomitant]
     Indication: PRODUCT USED FOR UNKNOWN INDICATION
  8. LEVOMENTHOL [Concomitant]
     Active Substance: LEVOMENTHOL
     Indication: PRODUCT USED FOR UNKNOWN INDICATION

REACTIONS (3)
  - Dizziness [Unknown]
  - Somnolence [Not Recovered/Not Resolved]
  - Drug interaction [Unknown]

NARRATIVE: CASE EVENT DATE: 20190219
